FAERS Safety Report 20612817 (Version 2)
Quarter: 2022Q1

REPORT INFORMATION
  Report Type: Report from Study
  Country: US (occurrence: US)
  Receive Date: 20220318
  Receipt Date: 20220328
  Transmission Date: 20220423
  Serious: Yes (Hospitalization, Other)
  Sender: FDA-Public Use
  Company Number: US-ALLERGAN-2208709US

PATIENT
  Sex: Female

DRUGS (1)
  1. LINACLOTIDE [Suspect]
     Active Substance: LINACLOTIDE
     Indication: Constipation
     Dosage: UNK UNK, BID
     Dates: start: 202101, end: 202201

REACTIONS (3)
  - Intestinal obstruction [Not Recovered/Not Resolved]
  - Therapy interrupted [Unknown]
  - Incorrect dose administered [Unknown]
